FAERS Safety Report 4735548-3 (Version None)
Quarter: 2005Q3

REPORT INFORMATION
  Report Type: 
  Country: None (occurrence: None)
  Receive Date: 20050803
  Receipt Date: 20050721
  Transmission Date: 20060218
  Serious: Yes (Other)
  Sender: FDA-Public Use
  Company Number: 2005104626

PATIENT
  Sex: Female
  Weight: 86.1834 kg

DRUGS (1)
  1. ROGAINE [Suspect]
     Indication: HYPOTRICHOSIS
     Dosage: LITTLE MORE THAN RECOMMENDED, ONCE, TOPICAL
     Route: 061
     Dates: start: 20020101, end: 20020101

REACTIONS (5)
  - CLAUSTROPHOBIA [None]
  - DYSPNOEA [None]
  - HEADACHE [None]
  - INCORRECT DOSE ADMINISTERED [None]
  - NERVOUSNESS [None]
